FAERS Safety Report 7390106-X (Version None)
Quarter: 2011Q2

REPORT INFORMATION
  Report Type: 
  Country: None (occurrence: None)
  Receive Date: 20110401
  Receipt Date: 20110323
  Transmission Date: 20111010
  Serious: Yes (Other)
  Sender: FDA-Public Use
  Company Number: IT-ASTRAZENECA-2010SE34047

PATIENT
  Age: 25063 Day
  Sex: Male

DRUGS (3)
  1. DEPAKENE [Suspect]
     Indication: MANIA
     Route: 048
     Dates: start: 20091111
  2. SEROQUEL [Suspect]
     Indication: MANIA
     Route: 048
     Dates: start: 20100303
  3. CLOPIXOL [Suspect]
     Indication: MANIA
     Route: 030
     Dates: start: 20100604, end: 20100628

REACTIONS (1)
  - LEUKOPENIA [None]
